FAERS Safety Report 6287356-2 (Version None)
Quarter: 2009Q3

REPORT INFORMATION
  Report Type: 
  Country: None (occurrence: None)
  Receive Date: 20090728
  Receipt Date: 20090721
  Transmission Date: 20100115
  Serious: Yes (Death, Hospitalization, Other)
  Sender: FDA-Public Use
  Company Number: US-AMGEN-US352275

PATIENT
  Sex: Female
  Weight: 47.2 kg

DRUGS (3)
  1. NPLATE [Suspect]
     Indication: IDIOPATHIC THROMBOCYTOPENIC PURPURA
     Route: 065
     Dates: start: 20081113, end: 20081126
  2. IMMUNOGLOBULINS [Concomitant]
     Route: 042
     Dates: start: 20081031, end: 20081031
  3. CYCLOSPORINE [Concomitant]

REACTIONS (2)
  - APLASTIC ANAEMIA [None]
  - DRUG INEFFECTIVE [None]
